FAERS Safety Report 4314581-X (Version None)
Quarter: 2004Q1

REPORT INFORMATION
  Report Type: 
  Country: None (occurrence: None)
  Receive Date: 20040308
  Receipt Date: 20040225
  Transmission Date: 20041129
  Serious: Yes (Other)
  Sender: FDA-Public Use
  Company Number: 2004200982GB

PATIENT
  Age: 34 Year
  Sex: Male

DRUGS (1)
  1. DELTA-CORTEF [Suspect]
     Indication: INFERTILITY
     Dosage: 40 MG, QD, 6 WEEKS

REACTIONS (1)
  - ASEPTIC NECROSIS BONE [None]
